FAERS Safety Report 8284907-3 (Version None)
Quarter: 2012Q2

REPORT INFORMATION
  Report Type: 
  Country: None (occurrence: None)
  Receive Date: 20120413
  Receipt Date: 20111017
  Transmission Date: 20120825
  Serious: No
  Sender: FDA-Public Use
  Company Number: US-ASTRAZENECA-2011SE61422

PATIENT
  Age: 59 Year
  Sex: Female
  Weight: 90.7 kg

DRUGS (12)
  1. INVEGA [Concomitant]
  2. LAMICTAL [Concomitant]
  3. NEXIUM [Suspect]
     Indication: GASTROOESOPHAGEAL REFLUX DISEASE
     Route: 048
     Dates: start: 20110901
  4. CYCLOBANZEPRINE [Concomitant]
  5. IRON [Concomitant]
  6. SEROQUEL [Suspect]
     Route: 048
  7. CITALOPRAM HYDROBROMIDE [Concomitant]
  8. VITAMIN D [Concomitant]
  9. TRAZODONE HCL [Concomitant]
  10. VITAMIN B COMPLEX CAP [Concomitant]
  11. LORAZEPAM [Concomitant]
  12. OXYBUTRINE [Concomitant]

REACTIONS (4)
  - GASTROOESOPHAGEAL REFLUX DISEASE [None]
  - NAUSEA [None]
  - DYSPEPSIA [None]
  - DRUG DOSE OMISSION [None]
